FAERS Safety Report 5089459-7 (Version None)
Quarter: 2006Q3

REPORT INFORMATION
  Report Type: 
  Country: None (occurrence: None)
  Receive Date: 20060727
  Receipt Date: 20060509
  Transmission Date: 20061208
  Serious: Yes (Other)
  Sender: FDA-Public Use
  Company Number: 2006063050

PATIENT
  Age: 75 Year
  Sex: Female

DRUGS (6)
  1. LYRICA [Suspect]
     Indication: PAIN
     Dosage: 100 MG (50 MG, 2 IN 1 D), ORAL
     Route: 048
     Dates: start: 20060101
  2. XANAX [Concomitant]
  3. ZANAFLEX [Concomitant]
  4. ACCUPRIL [Concomitant]
  5. LOPERAMIDE HCL [Concomitant]
  6. LOPRESSOR [Concomitant]

REACTIONS (3)
  - RASH [None]
  - WEIGHT INCREASED [None]
  - WHITE BLOOD CELL COUNT INCREASED [None]
